FAERS Safety Report 9636030 (Version 3)
Quarter: 2013Q4

REPORT INFORMATION
  Report Type: Spontaneous
  Country: CN (occurrence: CN)
  Receive Date: 20131021
  Receipt Date: 20131126
  Transmission Date: 20140711
  Serious: Yes (Hospitalization)
  Sender: FDA-Public Use
  Company Number: CN-GILEAD-2013-0084808

PATIENT
  Age: 49 Year
  Sex: Male
  Weight: 67.1 kg

DRUGS (2)
  1. HEPSERA [Suspect]
     Indication: CHRONIC HEPATITIS B
     Dosage: 10 MG, QD
     Dates: start: 200603, end: 20130306
  2. LAMIVUDINE [Concomitant]
     Indication: PRODUCT USED FOR UNKNOWN INDICATION
     Dosage: 100 MG, QD
     Dates: start: 20130306

REACTIONS (3)
  - Chest pain [Recovered/Resolved]
  - Hypophosphataemia [Recovered/Resolved]
  - Medication error [Recovered/Resolved]
